FAERS Safety Report 4767980-6 (Version None)
Quarter: 2005Q3

REPORT INFORMATION
  Report Type: 
  Country: None (occurrence: None)
  Receive Date: 20050913
  Receipt Date: 20050907
  Transmission Date: 20060218
  Serious: Yes (Hospitalization)
  Sender: FDA-Public Use
  Company Number: US-MERCK-0509USA00780

PATIENT
  Age: 69 Year
  Sex: Male

DRUGS (3)
  1. VIOXX [Suspect]
     Indication: INJURY
     Route: 048
     Dates: start: 20030101, end: 20041107
  2. ATENOLOL [Concomitant]
     Indication: HYPERTENSION
     Route: 065
  3. COZAAR [Concomitant]
     Indication: HYPERTENSION
     Route: 065

REACTIONS (2)
  - HEADACHE [None]
  - TACHYCARDIA [None]
